FAERS Safety Report 5138370-1 (Version None)
Quarter: 2006Q4

REPORT INFORMATION
  Report Type: 
  Country: None (occurrence: None)
  Receive Date: 20061030
  Receipt Date: 20061004
  Transmission Date: 20070319
  Serious: Yes (Hospitalization)
  Sender: FDA-Public Use
  Company Number: JP-AVENTIS-200613065JP

PATIENT
  Age: 50 Year
  Sex: Male

DRUGS (3)
  1. TAXOTERE [Suspect]
     Indication: LUNG SQUAMOUS CELL CARCINOMA STAGE UNSPECIFIED
     Route: 041
     Dates: start: 20041101, end: 20050201
  2. CISPLATIN [Suspect]
     Route: 041
     Dates: start: 20041101, end: 20050201
  3. RADIATION THERAPY [Suspect]
     Dosage: DOSE: 63 GY
     Dates: start: 20041101, end: 20050201

REACTIONS (5)
  - BONE MARROW FAILURE [None]
  - HEMIPARESIS [None]
  - RADIATION OESOPHAGITIS [None]
  - SPEECH DISORDER [None]
  - TRANSIENT ISCHAEMIC ATTACK [None]
